FAERS Safety Report 7885587 (Version 3)
Quarter: 2013Q1

REPORT INFORMATION
  Report Type: Spontaneous
  Country: CA (occurrence: CA)
  Receive Date: 20110405
  Receipt Date: 20130122
  Transmission Date: 20140127
  Serious: Yes (Hospitalization)
  Sender: FDA-Public Use
  Company Number: PHHY2011CA23904

PATIENT
  Sex: Male

DRUGS (13)
  1. SANDOSTATIN LAR [Suspect]
     Indication: ACROMEGALY
     Dosage: 40 MG ONCE A MONTH
     Route: 030
     Dates: start: 20090824
  2. SANDOSTATIN LAR [Suspect]
     Dosage: 30 MG, QMO
     Route: 030
  3. SANDOSTATIN LAR [Suspect]
     Dosage: 30 MG, EVERY 4 WEEKS
     Route: 030
  4. ASA [Concomitant]
  5. LIPITOR [Concomitant]
     Dosage: 40 MG, UNK
  6. CARVEDILOL [Concomitant]
     Dosage: 625 MG, BID
  7. LASIX [Concomitant]
     Dosage: 20 MG, UNK
  8. ALFACET [Concomitant]
     Dosage: 125 MG, UNK
  9. ALDACTONE [Concomitant]
     Dosage: 25 MG, UNK
  10. COUMADIN [Concomitant]
  11. ADVAIR [Concomitant]
  12. FLOMAX [Concomitant]
  13. VENTOLIN [Concomitant]

REACTIONS (2)
  - Cardiac failure [Unknown]
  - Dyspnoea [Not Recovered/Not Resolved]
